FAERS Safety Report 14385640 (Version 2)
Quarter: 2018Q2

REPORT INFORMATION
  Report Type: Spontaneous
  Country: US (occurrence: US)
  Receive Date: 20180115
  Receipt Date: 20180620
  Transmission Date: 20180711
  Serious: Yes (Other)
  Sender: FDA-Public Use
  Company Number: US-SA-2017SA010934

PATIENT
  Age: 48 Year
  Sex: Female
  Weight: 116.57 kg

DRUGS (4)
  1. TAXOTERE [Suspect]
     Active Substance: DOCETAXEL
     Dosage: UNK, Q3W
     Route: 051
     Dates: start: 201310, end: 201310
  2. TAXOTERE [Suspect]
     Active Substance: DOCETAXEL
     Indication: BREAST CANCER FEMALE
     Dosage: UNK
     Route: 051
     Dates: start: 201304, end: 201304
  3. ADRIAMYCIN [DOXORUBICIN] [Concomitant]
  4. CYTOXAN [Suspect]
     Active Substance: CYCLOPHOSPHAMIDE

REACTIONS (5)
  - Psychological trauma [Unknown]
  - Anxiety [Unknown]
  - Pain [Unknown]
  - Alopecia [Recovering/Resolving]
  - Emotional distress [Unknown]

NARRATIVE: CASE EVENT DATE: 201402
